FAERS Safety Report 22097283 (Version 9)
Quarter: 2023Q4

REPORT INFORMATION
  Report Type: Report from Study
  Country: CA (occurrence: None)
  Receive Date: 20230315
  Receipt Date: 20231201
  Transmission Date: 20240110
  Serious: Yes (Other)
  Sender: FDA-Public Use
  Company Number: CA-ROCHE-3302940

PATIENT
  Age: 56 Year
  Sex: Male
  Weight: 122.9 kg

DRUGS (19)
  1. OCRELIZUMAB [Suspect]
     Active Substance: OCRELIZUMAB
     Indication: Multiple sclerosis
     Dosage: START DATE OF MOST RECENT DOSE OF STUDY DRUG PRIOR TO SAE 22/SEP/2022, DOSE CONCENTRATION OF LAST ST
     Route: 042
     Dates: start: 20220922
  2. ACIDOPHILUS [Concomitant]
     Active Substance: LACTOBACILLUS ACIDOPHILUS
     Dosage: 90 OTHER
     Route: 048
     Dates: start: 201809, end: 20230214
  3. ATORVASTATIN [Concomitant]
     Active Substance: ATORVASTATIN
     Indication: Hypertension
     Route: 048
     Dates: start: 20200701
  4. ATIVAN [Concomitant]
     Active Substance: LORAZEPAM
     Indication: Procedural anxiety
     Route: 048
     Dates: start: 20201116
  5. BACLOFEN [Concomitant]
     Active Substance: BACLOFEN
     Indication: Muscle spasticity
     Dosage: MEDICATION FREQUENCY QD?MEDICATION INDICATION MS SPASTICITY
     Route: 048
     Dates: start: 20150209
  6. BACLOFEN [Concomitant]
     Active Substance: BACLOFEN
     Dosage: MEDICATION FREQUENCY QD?MEDICATION INDICATION MS SPASTICITY
     Route: 048
     Dates: start: 20150209
  7. CEFPROZIL [Concomitant]
     Active Substance: CEFPROZIL
     Indication: Cellulitis
     Route: 048
     Dates: start: 20220721
  8. VITAMIN B12 [Concomitant]
     Active Substance: CYANOCOBALAMIN
     Indication: Prophylaxis
     Route: 048
     Dates: start: 20221216
  9. RAMIPRIL [Concomitant]
     Active Substance: RAMIPRIL
     Indication: Hypertension
     Route: 048
     Dates: start: 20221221
  10. PRAMIPEXOLE [Concomitant]
     Active Substance: PRAMIPEXOLE
     Indication: Muscle spasticity
     Route: 048
     Dates: start: 20081118
  11. CHOLECALCIFEROL [Concomitant]
     Active Substance: CHOLECALCIFEROL
     Route: 048
     Dates: start: 20070101
  12. CEFZIL [Concomitant]
     Active Substance: CEFPROZIL
     Indication: Cellulitis
     Route: 048
     Dates: start: 20230427, end: 20230510
  13. CEFADROXIL [Concomitant]
     Active Substance: CEFADROXIL
     Route: 048
     Dates: start: 20230215, end: 20230301
  14. CEFADROXIL [Concomitant]
     Active Substance: CEFADROXIL
     Route: 048
     Dates: start: 20230427, end: 20230510
  15. ACETAMINOPHEN [Concomitant]
     Active Substance: ACETAMINOPHEN
     Route: 048
     Dates: start: 20230512, end: 202306
  16. ANCEF [Concomitant]
     Active Substance: CEFAZOLIN SODIUM
     Route: 042
     Dates: start: 20230512, end: 20230512
  17. FENTANYL [Concomitant]
     Active Substance: FENTANYL\FENTANYL CITRATE
     Route: 042
     Dates: start: 20230512, end: 20230512
  18. VERSED [Concomitant]
     Active Substance: MIDAZOLAM HYDROCHLORIDE
     Route: 042
     Dates: start: 20230512, end: 20230512
  19. DIPRIVAN [Concomitant]
     Active Substance: ISOPROPYL ALCOHOL\PROPOFOL
     Route: 042
     Dates: start: 20230512, end: 20230512

REACTIONS (1)
  - Solitary fibrous tumour [Not Recovered/Not Resolved]

NARRATIVE: CASE EVENT DATE: 20230119
